FAERS Safety Report 6488565-X (Version None)
Quarter: 2009Q4

REPORT INFORMATION
  Report Type: 
  Country: None (occurrence: None)
  Receive Date: 20091210
  Receipt Date: 20091130
  Transmission Date: 20100525
  Serious: Yes (Other)
  Sender: FDA-Public Use
  Company Number: US-WYE-H12393009

PATIENT
  Age: 57 Year
  Sex: Male

DRUGS (2)
  1. PRISTIQ [Suspect]
     Indication: DEPRESSION
     Route: 048
     Dates: start: 20091109, end: 20091123
  2. PRISTIQ [Suspect]
     Indication: ANXIETY
     Route: 048
     Dates: start: 20091124

REACTIONS (6)
  - COLD SWEAT [None]
  - DEPRESSION SUICIDAL [None]
  - DRUG INEFFECTIVE [None]
  - FRUSTRATION [None]
  - SCREAMING [None]
  - VISION BLURRED [None]
